FAERS Safety Report 25386256 (Version 2)
Quarter: 2025Q2

REPORT INFORMATION
  Report Type: Report from Study
  Country: CA (occurrence: CA)
  Receive Date: 20250602
  Receipt Date: 20250616
  Transmission Date: 20250716
  Serious: Yes (Hospitalization)
  Sender: NOVARTIS
  Company Number: CA-002147023-NVSC2025CA058600

PATIENT
  Sex: Female

DRUGS (2)
  1. KESIMPTA [Suspect]
     Active Substance: OFATUMUMAB
     Indication: Relapsing-remitting multiple sclerosis
     Route: 058
     Dates: start: 20250107
  2. KESIMPTA [Suspect]
     Active Substance: OFATUMUMAB
     Route: 065
     Dates: start: 20250114

REACTIONS (9)
  - Pneumonia [Not Recovered/Not Resolved]
  - Influenza [Not Recovered/Not Resolved]
  - Pyrexia [Unknown]
  - Illness [Unknown]
  - Sinusitis [Not Recovered/Not Resolved]
  - Concomitant disease aggravated [Not Recovered/Not Resolved]
  - Upper-airway cough syndrome [Recovered/Resolved]
  - Nasal congestion [Recovered/Resolved]
  - Cough [Recovered/Resolved]

NARRATIVE: CASE EVENT DATE: 20250107
